FAERS Safety Report 9097717 (Version 2)
Quarter: 2013Q1

REPORT INFORMATION
  Report Type: Spontaneous
  Country: CL (occurrence: CL)
  Receive Date: 20130212
  Receipt Date: 20130225
  Transmission Date: 20140127
  Serious: Yes (Death)
  Sender: FDA-Public Use
  Company Number: CL-BRISTOL-MYERS SQUIBB COMPANY-17366485

PATIENT
  Age: 67 Year
  Sex: Male
  Weight: 80 kg

DRUGS (4)
  1. METFORMIN HCL [Suspect]
     Indication: DIABETES MELLITUS
     Dosage: 2500MG/D:01APR10-14DEC10?2550MG:02JUN09-31MAR10
     Route: 048
     Dates: start: 20090602, end: 20101214
  2. ATENOLOL [Concomitant]
     Dates: start: 1995, end: 20101214
  3. ENALAPRIL [Concomitant]
     Route: 048
     Dates: start: 1995, end: 20101214
  4. DILTIAZEM HCL [Concomitant]
     Route: 048
     Dates: start: 2002, end: 20101214

REACTIONS (1)
  - Acute pulmonary oedema [Fatal]
